FAERS Safety Report 25214647 (Version 2)
Quarter: 2025Q2

REPORT INFORMATION
  Report Type: Spontaneous
  Country: US (occurrence: US)
  Receive Date: 20250418
  Receipt Date: 20250527
  Transmission Date: 20250716
  Serious: No
  Sender: UNIQUE PHARMACEUTICALS
  Company Number: US-UniquePharma-US-2025UPLSPO00030

PATIENT
  Age: 68 Year
  Weight: 81.6 kg

DRUGS (2)
  1. ATENOLOL [Suspect]
     Active Substance: ATENOLOL
     Indication: Blood pressure increased
     Dosage: EVENING, ONE HALF A PILL
     Route: 048
     Dates: start: 20250320
  2. ATENOLOL [Suspect]
     Active Substance: ATENOLOL
     Dosage: MORNING, ONE HALF A PILL
     Route: 048
     Dates: end: 20250321

REACTIONS (3)
  - Adverse drug reaction [Recovered/Resolved]
  - Drug ineffective [Unknown]
  - Incorrect dose administered [Unknown]

NARRATIVE: CASE EVENT DATE: 20250320
